FAERS Safety Report 5429277-0 (Version None)
Quarter: 2007Q3

REPORT INFORMATION
  Report Type: 
  Country: None (occurrence: None)
  Receive Date: 20070827
  Receipt Date: 20070821
  Transmission Date: 20080115
  Serious: Yes (Life-Threatening, Hospitalization)
  Sender: FDA-Public Use
  Company Number: CAP07000320

PATIENT
  Age: 78 Year
  Sex: Female

DRUGS (1)
  1. ACTONEL [Suspect]
     Indication: OSTEOPOROSIS
     Dosage: 35 MG, 1 /WEEK, ORAL
     Route: 048
     Dates: start: 20070524, end: 20070721

REACTIONS (3)
  - DECREASED APPETITE [None]
  - EOSINOPHILIC PNEUMONIA CHRONIC [None]
  - NIGHT SWEATS [None]
